FAERS Safety Report 4513183-X (Version None)
Quarter: 2004Q4

REPORT INFORMATION
  Report Type: 
  Country: None (occurrence: None)
  Receive Date: 20041124
  Receipt Date: 20041105
  Transmission Date: 20050328
  Serious: Yes (Life-Threatening, Hospitalization, Disabling, Other)
  Sender: FDA-Public Use
  Company Number: USA040360877

PATIENT
  Sex: Male
  Weight: 82 kg

DRUGS (12)
  1. FORTEO [Suspect]
     Indication: OSTEOPOROSIS
     Dosage: 20 UG/1 DAY
     Dates: start: 20040116, end: 20040122
  2. COUMADIN [Concomitant]
  3. TOPROL-XL [Concomitant]
  4. HYDROCHLOROTHIAZIDE [Concomitant]
  5. FLOMAX [Concomitant]
  6. MULTI-VITAMIN [Concomitant]
  7. VITAMIN E [Concomitant]
  8. FLONASE [Concomitant]
  9. CLARINEX [Concomitant]
  10. CALCIUM PLUS D [Concomitant]
  11. PROSCAR [Concomitant]
  12. GLUCOSAMINE CHONDROITIN [Concomitant]

REACTIONS (57)
  - ACTIVITIES OF DAILY LIVING IMPAIRED [None]
  - ACUTE MYOCARDIAL INFARCTION [None]
  - ALANINE AMINOTRANSFERASE INCREASED [None]
  - ANAEMIA MACROCYTIC [None]
  - APHAGIA [None]
  - ARRHYTHMIA [None]
  - ASPARTATE AMINOTRANSFERASE INCREASED [None]
  - ASTHENIA [None]
  - BACTERIA STOOL IDENTIFIED [None]
  - BLOOD ALBUMIN ABNORMAL [None]
  - BLOOD AMYLASE INCREASED [None]
  - BLOOD CREATINE PHOSPHOKINASE INCREASED [None]
  - BLOOD CREATINE PHOSPHOKINASE MB INCREASED [None]
  - BLOOD GLUCOSE INCREASED [None]
  - BLOOD POTASSIUM ABNORMAL [None]
  - BLOOD POTASSIUM DECREASED [None]
  - BLOOD SODIUM ABNORMAL [None]
  - BRAIN NATRIURETIC PEPTIDE INCREASED [None]
  - CARDIAC ARREST [None]
  - CARDIAC DISORDER [None]
  - CARDIAC FAILURE CONGESTIVE [None]
  - CARDIOMEGALY [None]
  - CAROTID ARTERY ATHEROMA [None]
  - CEREBRAL ATROPHY [None]
  - COMA [None]
  - CONFUSIONAL STATE [None]
  - CONVULSION [None]
  - DYSPHAGIA [None]
  - EJECTION FRACTION DECREASED [None]
  - ELECTROENCEPHALOGRAM ABNORMAL [None]
  - FALL [None]
  - FEEDING DISORDER [None]
  - GAMMA-GLUTAMYLTRANSFERASE INCREASED [None]
  - HAEMATURIA [None]
  - HEAD INJURY [None]
  - HEPATIC ENZYME INCREASED [None]
  - LABORATORY TEST ABNORMAL [None]
  - LARYNGEAL VENTRICLE PROLAPSE [None]
  - LIPASE INCREASED [None]
  - MECHANICAL COMPLICATION OF IMPLANT [None]
  - MUSCLE RIGIDITY [None]
  - MUSCLE SPASTICITY [None]
  - ORAL CANDIDIASIS [None]
  - PANCREATIC INJURY [None]
  - PANCREATITIS [None]
  - PCO2 DECREASED [None]
  - PHARMACEUTICAL PRODUCT COMPLAINT [None]
  - PNEUMONIA [None]
  - PNEUMONIA ASPIRATION [None]
  - POOR PERIPHERAL CIRCULATION [None]
  - SINUSITIS [None]
  - SPEECH DISORDER [None]
  - TREMOR [None]
  - VENTRICULAR HYPOKINESIA [None]
  - VOCAL CORD DISORDER [None]
  - WEIGHT DECREASED [None]
  - WHITE BLOOD CELL COUNT INCREASED [None]
